FAERS Safety Report 8915654 (Version 2)
Quarter: 2013Q1

REPORT INFORMATION
  Report Type: Spontaneous
  Country: US (occurrence: US)
  Receive Date: 20121119
  Receipt Date: 20130327
  Transmission Date: 20140127
  Serious: Yes (Hospitalization, Other)
  Sender: FDA-Public Use
  Company Number: US-GILEAD-2012-0064646

PATIENT
  Age: 57 Year
  Sex: Female

DRUGS (4)
  1. LETAIRIS [Suspect]
     Indication: PULMONARY HYPERTENSION
     Dosage: 5 MG, QD
     Route: 048
     Dates: start: 20120211
  2. LETAIRIS [Suspect]
     Dates: start: 20120210
  3. ADCIRCA [Concomitant]
     Indication: PULMONARY ARTERIAL HYPERTENSION
     Dates: start: 20120818
  4. ADCIRCA [Concomitant]

REACTIONS (4)
  - Convulsion [Not Recovered/Not Resolved]
  - Convulsion [Recovered/Resolved]
  - Hypoaesthesia [Unknown]
  - Hypoaesthesia [Unknown]
